FAERS Safety Report 4485567-X (Version None)
Quarter: 2004Q3

REPORT INFORMATION
  Report Type: 
  Country: None (occurrence: None)
  Receive Date: 20040821
  Receipt Date: 20041013
  Transmission Date: 20050211
  Serious: Yes (Other)
  Sender: FDA-Public Use
  Company Number: HQWYE835018OCT04

PATIENT
  Age: 49 Year
  Sex: Male
  Weight: 108.96 kg

DRUGS (11)
  1. DRISTAN SINUS (IBUPROFEN/PSEUDOEPHEDRINE, CAPLET) [Suspect]
     Indication: SINUS CONGESTION
     Dosage: 1 CAPLET EVERY 4 HOURS, ORAL
     Route: 048
     Dates: start: 19900101, end: 19980101
  2. . [Concomitant]
  3. . [Concomitant]
  4. . [Concomitant]
  5. . [Concomitant]
  6. . [Concomitant]
  7. . [Concomitant]
  8. . [Concomitant]
  9. . [Concomitant]
  10. . [Concomitant]
  11. . [Concomitant]

REACTIONS (2)
  - DRUG ABUSER [None]
  - DRUG WITHDRAWAL SYNDROME [None]
